FAERS Safety Report 20029069 (Version 1)
Quarter: 2021Q4

REPORT INFORMATION
  Report Type: Spontaneous
  Country: US (occurrence: US)
  Receive Date: 20211103
  Receipt Date: 20211103
  Transmission Date: 20220303
  Serious: No
  Sender: FDA-Public Use
  Company Number: US-EyePoint Pharmaceuticals, Inc.-US-EYP-21-00103

PATIENT
  Age: 37 Year
  Sex: Male

DRUGS (1)
  1. YUTIQ [Suspect]
     Active Substance: FLUOCINOLONE ACETONIDE
     Indication: Uveitis
     Route: 031
     Dates: start: 20210811, end: 20210811

REACTIONS (3)
  - Device dislocation [Unknown]
  - Medical device removal [Unknown]
  - No adverse event [Unknown]

NARRATIVE: CASE EVENT DATE: 20210811
